FAERS Safety Report 8805156 (Version 2)
Quarter: 2015Q1

REPORT INFORMATION
  Report Type: Report from Study
  Country: US (occurrence: US)
  Receive Date: 20120924
  Receipt Date: 20150323
  Transmission Date: 20150721
  Serious: Yes (Death, Hospitalization)
  Sender: FDA-Public Use
  Company Number: US-ROCHE-1124478

PATIENT
  Age: 55 Year
  Sex: Female
  Weight: 113.4 kg

DRUGS (36)
  1. CRESTOR [Concomitant]
     Active Substance: ROSUVASTATIN CALCIUM
     Route: 048
  2. WELLBUTRIN [Concomitant]
     Active Substance: BUPROPION HYDROCHLORIDE
     Route: 065
  3. SINGULAIR [Concomitant]
     Active Substance: MONTELUKAST SODIUM
     Route: 065
  4. ADVAIR HFA [Concomitant]
     Active Substance: FLUTICASONE PROPIONATE\SALMETEROL XINAFOATE
  5. ASPIRIN. [Concomitant]
     Active Substance: ASPIRIN
     Route: 048
  6. TEMOZOLOMIDE. [Concomitant]
     Active Substance: TEMOZOLOMIDE
  7. ONDANSETRON [Concomitant]
     Active Substance: ONDANSETRON
     Route: 042
  8. FLUCONAZOLE. [Concomitant]
     Active Substance: FLUCONAZOLE
     Route: 048
  9. VENLAFAXINE [Concomitant]
     Active Substance: VENLAFAXINE HYDROCHLORIDE
     Dosage: SUSTAAINED RELEASE, QAM
     Route: 048
  10. FAMOTIDINE. [Concomitant]
     Active Substance: FAMOTIDINE
     Route: 048
  11. VICODIN [Concomitant]
     Active Substance: ACETAMINOPHEN\HYDROCODONE BITARTRATE
     Dosage: PRN
     Route: 048
  12. AVASTIN [Suspect]
     Active Substance: BEVACIZUMAB
     Indication: BRAIN NEOPLASM MALIGNANT
     Route: 042
     Dates: start: 20070510
  13. AVASTIN [Suspect]
     Active Substance: BEVACIZUMAB
     Route: 042
     Dates: start: 20070626
  14. POTASSIUM CHLORIDE. [Concomitant]
     Active Substance: POTASSIUM CHLORIDE
     Dosage: DIR
     Route: 042
  15. LEVOFLOXACIN. [Concomitant]
     Active Substance: LEVOFLOXACIN
     Route: 048
  16. AVASTIN [Suspect]
     Active Substance: BEVACIZUMAB
     Route: 042
     Dates: start: 20070601
  17. HYDROCHLOROTHIAZIDE. [Concomitant]
     Active Substance: HYDROCHLOROTHIAZIDE
     Route: 048
  18. SIMVASTATIN. [Concomitant]
     Active Substance: SIMVASTATIN
     Dosage: QHS
     Route: 048
  19. DIPHENOXYLATE [Concomitant]
     Active Substance: DIPHENOXYLATE
     Dosage: QID, PRN
     Route: 048
  20. ATROPINE [Concomitant]
     Active Substance: ATROPINE
     Dosage: QID, PRN
     Route: 048
  21. COGENTIN [Concomitant]
     Active Substance: BENZTROPINE MESYLATE
     Dosage: RECEIVED ON 10/MAY/2007, 01/JUN/2007, 29/JUN/2007.
     Route: 048
  22. RANITIDINE [Concomitant]
     Active Substance: RANITIDINE\RANITIDINE HYDROCHLORIDE
     Route: 048
  23. KEPPRA [Concomitant]
     Active Substance: LEVETIRACETAM
     Route: 065
  24. DEXAMETHASONE. [Concomitant]
     Active Substance: DEXAMETHASONE
     Dosage: RECEIVED ON 10/MAY/2007, 01/JUN/2007, 29/JUN/2007.
     Route: 048
  25. TRILEPTAL [Concomitant]
     Active Substance: OXCARBAZEPINE
     Route: 048
  26. NEUPOGEN [Concomitant]
     Active Substance: FILGRASTIM
     Route: 058
  27. CAMPTOSAR [Concomitant]
     Active Substance: IRINOTECAN HYDROCHLORIDE
     Dosage: RECEIVED ON 10/MAY/2007, 01/JUN/2007, 29/JUN/2007.
     Route: 042
  28. KYTRIL [Concomitant]
     Active Substance: GRANISETRON HYDROCHLORIDE
     Route: 065
  29. EFFEXOR [Concomitant]
     Active Substance: VENLAFAXINE HYDROCHLORIDE
     Dosage: 3 TABLETS
     Route: 048
  30. IBUPROFEN. [Concomitant]
     Active Substance: IBUPROFEN
     Dosage: PRN
     Route: 065
  31. VALACYCLOVIR [Concomitant]
     Active Substance: VALACYCLOVIR HYDROCHLORIDE
     Route: 048
  32. BISOPROLOL/HYDROCHLOROTHIAZIDE [Concomitant]
     Active Substance: BISOPROLOL FUMARATE\HYDROCHLOROTHIAZIDE
     Dosage: 5-6.5 MG
     Route: 048
  33. TRIAMTERENE. [Concomitant]
     Active Substance: TRIAMTERENE
     Route: 048
  34. ALBUTEROL. [Concomitant]
     Active Substance: ALBUTEROL
     Dosage: 2 PUFFS, PRN, INHALER
     Route: 065
  35. DETROL [Concomitant]
     Active Substance: TOLTERODINE TARTRATE
     Dosage: LR
     Route: 048
  36. ATROPINE [Concomitant]
     Active Substance: ATROPINE
     Dosage: RECEIVED ON 10/MAY/2007, 01/JUN/2007, 29/JUN/2007.
     Route: 058

REACTIONS (22)
  - Diarrhoea [Unknown]
  - Asthenia [Unknown]
  - Hypoaesthesia [Unknown]
  - Haemorrhage [Unknown]
  - Headache [Unknown]
  - Haemorrhoids [Unknown]
  - Dehydration [Unknown]
  - Hypoxia [Unknown]
  - Off label use [Unknown]
  - Gastrointestinal disorder [Unknown]
  - White blood cell count decreased [Unknown]
  - Vomiting [Unknown]
  - Fatigue [Unknown]
  - Dizziness [Unknown]
  - Disease progression [Unknown]
  - Hypokalaemia [Unknown]
  - Paraesthesia [Unknown]
  - Mood altered [Unknown]
  - Nausea [Recovering/Resolving]
  - Muscle twitching [Unknown]
  - Pain [Unknown]
  - Death [Fatal]

NARRATIVE: CASE EVENT DATE: 20080609
